FAERS Safety Report 15425111 (Version 1)
Quarter: 2018Q4

REPORT INFORMATION
  Report Type: Spontaneous
  Country: US (occurrence: US)
  Receive Date: 20180925
  Receipt Date: 20180925
  Transmission Date: 20190204
  Serious: No
  Sender: FDA-Public Use
  Company Number: US-THERAPEUTICSMD-2018TMD00119

PATIENT
  Age: 74 Year
  Sex: Female

DRUGS (1)
  1. IMVEXXY [Suspect]
     Active Substance: ESTRADIOL
     Dosage: UNK, 1X/DAY DIRECTLY BEFORE BEDTIME
     Dates: start: 20180816, end: 20180817

REACTIONS (2)
  - Heart rate increased [Unknown]
  - Insomnia [Unknown]

NARRATIVE: CASE EVENT DATE: 201808
